FAERS Safety Report 5080000-1 (Version None)
Quarter: 2006Q3

REPORT INFORMATION
  Report Type: 
  Country: None (occurrence: None)
  Receive Date: 20060810
  Receipt Date: 20060727
  Transmission Date: 20061208
  Serious: Yes (Hospitalization)
  Sender: FDA-Public Use
  Company Number: SPV1-2006-00337

PATIENT
  Age: 23 Year
  Sex: Female

DRUGS (2)
  1. PENTASA [Suspect]
     Indication: CROHN'S DISEASE
     Dosage: 4 G DAILY, RECTAL
     Route: 054
  2. IMUREL /00001502/(AZATHIOPRINE SODIUM) [Suspect]
     Dosage: 125 MG DAILY, ORAL
     Route: 048

REACTIONS (8)
  - ARTHRALGIA [None]
  - ASTHENIA [None]
  - CHILLS [None]
  - CYTOMEGALOVIRUS INFECTION [None]
  - HYPERTHERMIA [None]
  - INFLUENZA LIKE ILLNESS [None]
  - MYALGIA [None]
  - VIRAL INFECTION [None]
